FAERS Safety Report 5384881-3 (Version None)
Quarter: 2007Q3

REPORT INFORMATION
  Report Type: 
  Country: None (occurrence: None)
  Receive Date: 20070709
  Receipt Date: 20070622
  Transmission Date: 20080115
  Serious: Yes (Other)
  Sender: FDA-Public Use
  Company Number: T200700650

PATIENT
  Age: 45 Year
  Sex: Male
  Weight: 79.4 kg

DRUGS (5)
  1. RESTORIL [Suspect]
     Indication: INSOMNIA
     Dosage: 60 MG, QD PRN, ORAL
     Route: 048
     Dates: start: 20050101
  2. OXYCONTIN [Suspect]
     Indication: BACK PAIN
     Dosage: 80 MG, BID, ORAL
     Route: 048
     Dates: start: 20040101, end: 20070401
  3. MS CONTIN [Suspect]
     Indication: BACK PAIN
     Dosage: SEE IMAGE
     Route: 048
     Dates: start: 20040101, end: 20070401
  4. MS CONTIN [Suspect]
     Indication: BACK PAIN
     Dosage: SEE IMAGE
     Route: 048
     Dates: start: 20040101, end: 20070401
  5. ROXICODONE [Suspect]
     Indication: BACK PAIN
     Dosage: 30 MG, QID, ORAL
     Route: 048
     Dates: start: 20040101, end: 20070401

REACTIONS (5)
  - CONVULSION [None]
  - MEMORY IMPAIRMENT [None]
  - MYDRIASIS [None]
  - TREMOR [None]
  - VISUAL DISTURBANCE [None]
